FAERS Safety Report 8961363 (Version 1)
Quarter: 2012Q4

REPORT INFORMATION
  Report Type: 
  Country: US (occurrence: US)
  Receive Date: 20121212
  Receipt Date: 20121212
  Transmission Date: 20130627
  Serious: Yes (Hospitalization)
  Sender: FDA-Public Use
  Company Number: US-BAXTER-2012BAX025592

PATIENT
  Age: 65 Year
  Sex: Female

DRUGS (1)
  1. DIANEAL PD2 (ULTRABAG) [Suspect]
     Indication: PERITONEAL DIALYSIS
     Route: 033

REACTIONS (5)
  - Peritoneal dialysis complication [Recovering/Resolving]
  - Peritonitis bacterial [Recovering/Resolving]
  - Fluid overload [Recovering/Resolving]
  - Hypotension [Recovering/Resolving]
  - Peritoneal dialysis complication [Unknown]
